FAERS Safety Report 7394714-1 (Version None)
Quarter: 2011Q2

REPORT INFORMATION
  Report Type: 
  Country: None (occurrence: None)
  Receive Date: 20110405
  Receipt Date: 20110323
  Transmission Date: 20111010
  Serious: Yes (Other)
  Sender: FDA-Public Use
  Company Number: PHHY2011JP10726

PATIENT
  Sex: Female

DRUGS (10)
  1. MIZORIBINE [Concomitant]
     Indication: RENAL TRANSPLANT
     Dosage: UNK
  2. TACROLIMUS [Concomitant]
     Indication: RENAL TRANSPLANT
     Dosage: UNK
  3. METHYLPREDNISOLONE [Concomitant]
     Dosage: 60 MG, UNK
  4. SIMULECT [Suspect]
     Indication: RENAL TRANSPLANT
     Dosage: 20 MG, ONCE/SINGLE
     Route: 042
  5. METHYLPREDNISOLONE [Concomitant]
     Dosage: 500 MG, UNK
  6. METHYLPREDNISOLONE [Concomitant]
     Indication: RENAL TRANSPLANT
     Dosage: UNK
  7. CYCLOSPORINE [Suspect]
     Indication: RENAL TRANSPLANT
     Dosage: UNK
     Route: 048
  8. CYCLOSPORINE [Suspect]
     Indication: VIRAL INFECTION
  9. CELLCEPT [Concomitant]
     Indication: RENAL TRANSPLANT
     Dosage: UNK
  10. GUSPERIMUS HYDROCHLORIDE [Concomitant]

REACTIONS (11)
  - IGA NEPHROPATHY [None]
  - RENAL IMPAIRMENT [None]
  - CYTOMEGALOVIRUS INFECTION [None]
  - TUBULOINTERSTITIAL NEPHRITIS [None]
  - TRANSPLANT REJECTION [None]
  - BLOOD CREATININE INCREASED [None]
  - MALAISE [None]
  - OVERWORK [None]
  - DIARRHOEA [None]
  - GLOMERULONEPHRITIS PROLIFERATIVE [None]
  - BLOOD URINE PRESENT [None]
